FAERS Safety Report 5212070-1 (Version None)
Quarter: 2007Q1

REPORT INFORMATION
  Report Type: 
  Country: None (occurrence: None)
  Receive Date: 20070118
  Receipt Date: 20070108
  Transmission Date: 20070707
  Serious: Yes (Hospitalization, Other)
  Sender: FDA-Public Use
  Company Number: PHEH2007US00640

PATIENT
  Age: 73 Year
  Sex: Female
  Weight: 45.26 kg

DRUGS (3)
  1. ZOMETA [Suspect]
     Indication: MULTIPLE MYELOMA
  2. ARANESP [Suspect]
     Indication: ANAEMIA OF MALIGNANT DISEASE
     Dosage: 200 MEQ ^ONE IN ONE WEEK^
     Route: 058
     Dates: start: 20061020
  3. VELCADE [Suspect]
     Indication: MULTIPLE MYELOMA

REACTIONS (13)
  - ANAEMIA [None]
  - DYSPNOEA [None]
  - EMPHYSEMA [None]
  - HYPERCALCAEMIA [None]
  - HYPONATRAEMIA [None]
  - HYPOPROTEINAEMIA [None]
  - MULTIPLE MYELOMA [None]
  - NEOPLASM MALIGNANT [None]
  - PNEUMONIA [None]
  - RED BLOOD CELL SEDIMENTATION RATE INCREASED [None]
  - RENAL FAILURE [None]
  - THROMBOCYTOPENIA [None]
  - WEIGHT DECREASED [None]
